FAERS Safety Report 25495189 (Version 1)
Quarter: 2025Q2

REPORT INFORMATION
  Report Type: Spontaneous
  Country: FR (occurrence: FR)
  Receive Date: 20250630
  Receipt Date: 20250630
  Transmission Date: 20250717
  Serious: Yes (Other)
  Sender: PFIZER
  Company Number: FR-ADVANZ PHARMA-202506004627

PATIENT
  Sex: Male

DRUGS (4)
  1. ALPROSTADIL [Suspect]
     Active Substance: ALPROSTADIL
  2. EDEX [Suspect]
     Active Substance: ALPROSTADIL
     Route: 017
  3. EDEX [Suspect]
     Active Substance: ALPROSTADIL
     Route: 017
     Dates: start: 20250606
  4. TADALAFIL [Concomitant]
     Active Substance: TADALAFIL
     Indication: Prostate cancer

REACTIONS (4)
  - Sexual dysfunction [Unknown]
  - Feeling hot [Unknown]
  - Penile pain [Recovered/Resolved]
  - Priapism [Recovered/Resolved]

NARRATIVE: CASE EVENT DATE: 20250606
